FAERS Safety Report 7092256-4 (Version None)
Quarter: 2010Q4

REPORT INFORMATION
  Report Type: 
  Country: None (occurrence: None)
  Receive Date: 20101109
  Receipt Date: 20101028
  Transmission Date: 20110411
  Serious: Yes (Other)
  Sender: FDA-Public Use
  Company Number: DK-GENENTECH-309135

PATIENT
  Sex: Female

DRUGS (1)
  1. LUCENTIS [Suspect]
     Indication: PRODUCT USED FOR UNKNOWN INDICATION
     Dosage: UNK
     Route: 031
     Dates: start: 20091221, end: 20100504

REACTIONS (8)
  - CATARACT OPERATION [None]
  - EYE INFLAMMATION [None]
  - EYE PAIN [None]
  - INTRAOCULAR LENS IMPLANT [None]
  - IRIDOCYCLITIS [None]
  - RETINAL EXUDATES [None]
  - VITRECTOMY [None]
  - VITRITIS [None]
